FAERS Safety Report 6180154-X (Version None)
Quarter: 2009Q2

REPORT INFORMATION
  Report Type: 
  Country: None (occurrence: None)
  Receive Date: 20090505
  Receipt Date: 20090415
  Transmission Date: 20091009
  Serious: Yes (Other)
  Sender: FDA-Public Use
  Company Number: PL-BAYER-200918616GPV

PATIENT
  Age: 81 Year
  Sex: Female
  Weight: 69 kg

DRUGS (16)
  1. RIVAROXABAN 10MG PO 35+/-4 DAYS OR ENOXAPARIN 40MG SC 10+/-4 DAYS [Interacting]
     Indication: THROMBOSIS PROPHYLAXIS
     Route: 048
     Dates: start: 20090401, end: 20090414
  2. POLOCARD [Suspect]
     Indication: CARDIAC FAILURE
     Route: 048
  3. TRITACE [Concomitant]
     Indication: HYPERTENSION
     Route: 048
  4. AMLOZEK [Concomitant]
     Indication: HYPERTENSION
     Route: 048
  5. FUROSEMIDIUM [Concomitant]
     Indication: HYPERTENSION
     Route: 048
  6. SPIRONOL [Concomitant]
     Indication: HYPERTENSION
     Route: 048
  7. GASEC [Concomitant]
     Indication: GASTRIC ULCER
     Route: 048
  8. FORADIL [Concomitant]
     Indication: CHRONIC OBSTRUCTIVE PULMONARY DISEASE
     Route: 055
  9. ALVESCO [Concomitant]
     Indication: CHRONIC OBSTRUCTIVE PULMONARY DISEASE
     Route: 055
  10. SPIRIVA [Concomitant]
     Indication: CHRONIC OBSTRUCTIVE PULMONARY DISEASE
     Route: 055
  11. DUSPATALIN [Concomitant]
     Indication: IRRITABLE BOWEL SYNDROME
     Route: 048
  12. THYROID TAB [Concomitant]
     Indication: HYPERTHYROIDISM
     Dosage: AS USED: 10 MG
     Route: 048
     Dates: start: 20090409
  13. IMOVANE [Concomitant]
     Indication: INSOMNIA
     Dosage: AS USED: 7.5 MG
     Route: 048
  14. OXAZEPAM [Concomitant]
     Indication: SEDATIVE THERAPY
  15. METYPRED [Concomitant]
     Indication: CHRONIC OBSTRUCTIVE PULMONARY DISEASE
     Dates: start: 20090413, end: 20090416
  16. METYPRED [Concomitant]
     Dosage: AS USED: 4 MG
     Dates: start: 20090409, end: 20090412

REACTIONS (4)
  - CONTUSION [None]
  - GINGIVAL BLEEDING [None]
  - GINGIVAL PAIN [None]
  - HAEMORRHOIDAL HAEMORRHAGE [None]
